FAERS Safety Report 23365078 (Version 1)
Quarter: 2024Q1

REPORT INFORMATION
  Report Type: Spontaneous
  Country: GB (occurrence: GB)
  Receive Date: 20240104
  Receipt Date: 20240104
  Transmission Date: 20240409
  Serious: Yes (Other)
  Sender: FDA-Public Use
  Company Number: GB-MHRA-EMIS-2740-e9cb3b21-09de-461a-8727-eaa1f90abd41

PATIENT
  Age: 30 Year
  Sex: Male
  Weight: 85 kg

DRUGS (4)
  1. LAMOTRIGINE [Suspect]
     Active Substance: LAMOTRIGINE
     Indication: Product used for unknown indication
     Dosage: 1 DOSAGE FORM, EVERY OTHER DAY (AKE ONE ON ALTERNATE NIGHTS FOR 2 WEEKS,.......)
     Route: 065
     Dates: start: 20231130
  2. INFLUENZA VIRUS VACCINE [Concomitant]
     Active Substance: INFLUENZA VIRUS VACCINE
     Indication: Dysphonia
     Dosage: UNK, AS DIRECTED
     Route: 065
     Dates: start: 20231031
  3. ALBUTEROL [Concomitant]
     Active Substance: ALBUTEROL
     Indication: Product used for unknown indication
     Dosage: UNK, INHALE TWO PUFFS SLOW AND STEADY, WHEN REQUIRED
     Dates: start: 20231201
  4. EPILIM [Concomitant]
     Active Substance: VALPROATE SODIUM
     Indication: Product used for unknown indication
     Dosage: UNK
     Route: 065

REACTIONS (1)
  - Liver function test abnormal [Recovered/Resolved]

NARRATIVE: CASE EVENT DATE: 20231130
